FAERS Safety Report 8726782 (Version 11)
Quarter: 2014Q1

REPORT INFORMATION
  Report Type: Report from Study
  Country: US (occurrence: US)
  Receive Date: 20120816
  Receipt Date: 20140307
  Transmission Date: 20141002
  Serious: Yes (Hospitalization, Congenital Anomaly, Other)
  Sender: FDA-Public Use
  Company Number: US-ROCHE-1098975

PATIENT
  Age: 0 Day
  Sex: Male

DRUGS (20)
  1. OMALIZUMAB [Suspect]
     Indication: PRODUCT USED FOR UNKNOWN INDICATION
     Route: 064
     Dates: start: 20111004
  2. OMALIZUMAB [Suspect]
     Route: 064
     Dates: start: 20111121
  3. OMALIZUMAB [Suspect]
     Route: 064
     Dates: start: 20111221
  4. OMALIZUMAB [Suspect]
     Route: 064
     Dates: start: 20120125
  5. OMALIZUMAB [Suspect]
     Route: 064
     Dates: start: 20120220
  6. OMALIZUMAB [Suspect]
     Route: 064
     Dates: start: 20120322
  7. OMALIZUMAB [Suspect]
     Route: 064
     Dates: start: 20120425
  8. OMALIZUMAB [Suspect]
     Route: 064
     Dates: start: 20120531
  9. OMALIZUMAB [Suspect]
     Route: 064
     Dates: start: 20120702
  10. OMALIZUMAB [Suspect]
     Route: 063
     Dates: start: 20120802
  11. ROCEPHIN [Concomitant]
     Route: 065
  12. TYLENOL [Concomitant]
     Indication: PYREXIA
  13. BENADRYL (UNITED STATES) [Concomitant]
  14. SYMBICORT [Concomitant]
     Indication: ASTHMA
  15. LEVOTHYROXINE [Concomitant]
     Indication: BASEDOW^S DISEASE
  16. SINGULAIR [Concomitant]
     Indication: ASTHMA
  17. TUMS [Concomitant]
     Indication: GASTROOESOPHAGEAL REFLUX DISEASE
  18. PRILOSEC [Concomitant]
     Indication: GASTROOESOPHAGEAL REFLUX DISEASE
  19. IBUPROFEN [Concomitant]
     Indication: PAIN
  20. DESYREL [Concomitant]
     Indication: INSOMNIA

REACTIONS (15)
  - Jaundice neonatal [Recovered/Resolved]
  - Ankyloglossia congenital [Recovered/Resolved]
  - Torticollis [Recovered/Resolved]
  - Plagiocephaly [Recovered/Resolved]
  - Upper respiratory tract infection [Unknown]
  - Ear infection [Recovered/Resolved]
  - Vomiting [Unknown]
  - Diarrhoea [Unknown]
  - Wheezing [Not Recovered/Not Resolved]
  - Croup infectious [Unknown]
  - Maternal exposure timing unspecified [Unknown]
  - Exposure during breast feeding [Unknown]
  - Sinusitis [Recovered/Resolved]
  - Weight gain poor [Unknown]
  - Gait disturbance [Unknown]
